FAERS Safety Report 4685066-6 (Version None)
Quarter: 2005Q2

REPORT INFORMATION
  Report Type: 
  Country: None (occurrence: None)
  Receive Date: 20050603
  Receipt Date: 20050524
  Transmission Date: 20051028
  Serious: Yes (Hospitalization)
  Sender: FDA-Public Use
  Company Number: GBWYE655210MAY05

PATIENT
  Age: 74 Year
  Sex: Female

DRUGS (7)
  1. LODINE [Suspect]
     Indication: ARTHRITIS
     Dosage: 600MG OM, ORAL
     Route: 048
     Dates: start: 20050101, end: 20050301
  2. AMLODIPINE [Concomitant]
  3. AZATHIOPRINE [Concomitant]
  4. PREDNISONE [Concomitant]
  5. SIMVASTATIN [Concomitant]
  6. ASPIRIN [Concomitant]
  7. FUROSEMIDE [Concomitant]

REACTIONS (3)
  - ABDOMINAL PAIN [None]
  - HAEMATEMESIS [None]
  - HAEMATOCHEZIA [None]
